FAERS Safety Report 9060783 (Version 3)
Quarter: 2013Q2

REPORT INFORMATION
  Report Type: Spontaneous
  Country: US (occurrence: US)
  Receive Date: 20130204
  Receipt Date: 20130409
  Transmission Date: 20140414
  Serious: Yes (Hospitalization, Other)
  Sender: FDA-Public Use
  Company Number: US-ROCHE-1184828

PATIENT
  Age: 81 Year
  Sex: Female
  Weight: 88.53 kg

DRUGS (1)
  1. XELODA [Suspect]
     Indication: COLON CANCER
     Route: 048
     Dates: start: 20121010

REACTIONS (4)
  - Pulmonary oedema [Unknown]
  - Cardiac failure congestive [Recovered/Resolved]
  - Blood pressure inadequately controlled [Unknown]
  - Vision blurred [Unknown]
